FAERS Safety Report 6367396-5 (Version None)
Quarter: 2009Q3

REPORT INFORMATION
  Report Type: 
  Country: None (occurrence: None)
  Receive Date: 20090921
  Receipt Date: 20090915
  Transmission Date: 20100115
  Serious: Yes (Hospitalization)
  Sender: FDA-Public Use
  Company Number: A0806863A

PATIENT
  Age: 67 Year
  Sex: Male

DRUGS (8)
  1. AVANDIA [Suspect]
     Dosage: 4MG TWICE PER DAY
     Route: 048
  2. AVANDAMET [Suspect]
     Dosage: 1TAB TWICE PER DAY
     Route: 048
  3. DIOVAN [Concomitant]
  4. ASPIRIN [Concomitant]
  5. GLUCOTROL [Concomitant]
  6. VITAMIN B-12 [Concomitant]
  7. LIPITOR [Concomitant]
  8. FOLIC ACID [Concomitant]

REACTIONS (2)
  - ANGINA UNSTABLE [None]
  - MYOCARDIAL INFARCTION [None]
